FAERS Safety Report 9815315 (Version 4)
Quarter: 2014Q2

REPORT INFORMATION
  Report Type: Spontaneous
  Country: JP (occurrence: JP)
  Receive Date: 20140114
  Receipt Date: 20140403
  Transmission Date: 20141212
  Serious: Yes (Hospitalization)
  Sender: FDA-Public Use
  Company Number: JP-ROCHE-1333215

PATIENT
  Age: 85 Year
  Sex: Male

DRUGS (4)
  1. LUCENTIS [Suspect]
     Indication: AGE-RELATED MACULAR DEGENERATION
     Route: 050
     Dates: start: 20130909
  2. LUCENTIS [Suspect]
     Route: 050
     Dates: start: 20131016
  3. LUCENTIS [Suspect]
     Route: 050
     Dates: start: 20131111
  4. CRAVIT [Concomitant]
     Route: 065
     Dates: start: 20130910

REACTIONS (2)
  - Keratitis [Unknown]
  - Blood glucose increased [Recovered/Resolved]
